FAERS Safety Report 13872970 (Version 2)
Quarter: 2017Q3

REPORT INFORMATION
  Report Type: Spontaneous
  Country: FR (occurrence: FR)
  Receive Date: 20170816
  Receipt Date: 20170821
  Transmission Date: 20171127
  Serious: Yes (Other)
  Sender: FDA-Public Use
  Company Number: FR-009507513-1708FRA005561

PATIENT
  Sex: Female

DRUGS (1)
  1. IMPLANON [Suspect]
     Active Substance: ETONOGESTREL
     Dosage: 1 DF, UNK
     Route: 059
     Dates: start: 2002, end: 2004

REACTIONS (7)
  - Ocular discomfort [Unknown]
  - Cardiac disorder [Unknown]
  - Exostosis [Unknown]
  - Pericarditis [Unknown]
  - Complication associated with device [Unknown]
  - Pain in extremity [Unknown]
  - Complication of device removal [Unknown]

NARRATIVE: CASE EVENT DATE: 2006
